FAERS Safety Report 6883004-9 (Version None)
Quarter: 2010Q3

REPORT INFORMATION
  Report Type: 
  Country: None (occurrence: None)
  Receive Date: 20100727
  Receipt Date: 20100719
  Transmission Date: 20110219
  Serious: Yes (Other)
  Sender: FDA-Public Use
  Company Number: GB-AMGEN-UK415129

PATIENT
  Sex: Female
  Weight: 48.8 kg

DRUGS (19)
  1. NEULASTA [Suspect]
     Indication: CHEMOTHERAPY
     Route: 058
     Dates: start: 20100511, end: 20100511
  2. RITUXIMAB [Concomitant]
     Route: 042
     Dates: start: 20100428
  3. CYCLOPHOSPHAMIDE [Concomitant]
     Route: 042
     Dates: start: 20100429
  4. VINCRISTINE [Concomitant]
     Route: 042
     Dates: start: 20100429
  5. DOXORUBICIN HYDROCHLORIDE [Concomitant]
     Route: 042
     Dates: start: 20100429
  6. LEUCOVORIN CALCIUM [Concomitant]
     Route: 042
     Dates: start: 20100509
  7. METHOTREXATE [Concomitant]
     Dates: start: 20100508
  8. CYTARABINE [Concomitant]
     Route: 037
     Dates: start: 20100428
  9. PARACETAMOL [Concomitant]
     Route: 048
     Dates: start: 20100427, end: 20100515
  10. RANITIDINE [Concomitant]
     Route: 048
     Dates: start: 20100505, end: 20100526
  11. COCAINE [Concomitant]
     Dates: start: 20100515, end: 20100525
  12. MORPHINE [Concomitant]
  13. NOZINAN [Concomitant]
  14. ACYCLOVIR [Concomitant]
     Route: 048
  15. LORAZEPAM [Concomitant]
     Route: 048
     Dates: start: 20100505, end: 20100523
  16. NALOXONE [Concomitant]
     Route: 042
     Dates: start: 20100515, end: 20100517
  17. CYCLIZINE [Concomitant]
     Dates: start: 20100505, end: 20100507
  18. TAZOSYN [Concomitant]
     Route: 042
     Dates: start: 20100518, end: 20100524
  19. CEFTAZIDIME [Concomitant]
     Route: 042
     Dates: start: 20100515, end: 20100518

REACTIONS (2)
  - BONE MARROW DISORDER [None]
  - NEUTROPHIL COUNT INCREASED [None]
